FAERS Safety Report 11166655 (Version 1)
Quarter: 2015Q2

REPORT INFORMATION
  Report Type: Spontaneous
  Country: US (occurrence: US)
  Receive Date: 20150605
  Receipt Date: 20150605
  Transmission Date: 20150821
  Serious: No
  Sender: FDA-Public Use
  Company Number: US-JNJFOC-20150507633

PATIENT
  Sex: Male
  Weight: 74.84 kg

DRUGS (2)
  1. RISPERIDONE. [Suspect]
     Active Substance: RISPERIDONE
     Indication: SCHIZOPHRENIA
     Route: 048
     Dates: start: 201307, end: 2013
  2. RISPERIDONE. [Suspect]
     Active Substance: RISPERIDONE
     Indication: SCHIZOPHRENIA
     Route: 048
     Dates: start: 201503, end: 201504

REACTIONS (3)
  - Flat affect [Recovered/Resolved]
  - Hypometabolism [Unknown]
  - Personality disorder [Recovered/Resolved]

NARRATIVE: CASE EVENT DATE: 2013
